FAERS Safety Report 18114987 (Version 1)
Quarter: 2020Q3

REPORT INFORMATION
  Report Type: Spontaneous
  Country: CN (occurrence: CN)
  Receive Date: 20200805
  Receipt Date: 20200805
  Transmission Date: 20201103
  Serious: Yes (Other)
  Sender: FDA-Public Use
  Company Number: CN-PFIZER INC-2020293062

PATIENT
  Age: 64 Year
  Sex: Female
  Weight: 60 kg

DRUGS (2)
  1. MEPEM [MEROPENEM] [Concomitant]
     Active Substance: MEROPENEM
     Indication: PNEUMONIA
     Dosage: 500 MG, 4X/DAY
     Dates: start: 20200612, end: 20200708
  2. TYGACIL [Suspect]
     Active Substance: TIGECYCLINE
     Indication: PNEUMONIA
     Dosage: 50 MG, 2X/DAY
     Route: 041
     Dates: start: 20200608, end: 20200702

REACTIONS (5)
  - Blood alkaline phosphatase increased [Unknown]
  - Off label use [Unknown]
  - Product use in unapproved indication [Unknown]
  - Hepatic enzyme increased [Unknown]
  - Blood bilirubin increased [Unknown]

NARRATIVE: CASE EVENT DATE: 20200608
